FAERS Safety Report 6025094-1 (Version None)
Quarter: 2008Q4

REPORT INFORMATION
  Report Type: 
  Country: None (occurrence: None)
  Receive Date: 20081231
  Receipt Date: 20081223
  Transmission Date: 20090506
  Serious: Yes (Hospitalization)
  Sender: FDA-Public Use
  Company Number: SE-WYE-G02840808

PATIENT
  Sex: Male

DRUGS (6)
  1. EFFEXOR [Suspect]
     Indication: DEPRESSION
     Route: 048
  2. VOXRA [Interacting]
     Route: 048
  3. SOBRIL [Concomitant]
  4. ZOLPIDEM TARTRATE [Concomitant]
  5. SEROQUEL [Concomitant]
  6. PROPAVAN [Concomitant]

REACTIONS (5)
  - AMNESIA [None]
  - CONVULSION [None]
  - DRUG INTERACTION [None]
  - HUMERUS FRACTURE [None]
  - RESTLESSNESS [None]
